FAERS Safety Report 4853920-8 (Version None)
Quarter: 2005Q4

REPORT INFORMATION
  Report Type: 
  Country: None (occurrence: None)
  Receive Date: 20051214
  Receipt Date: 20050426
  Transmission Date: 20060501
  Serious: Yes (Hospitalization, Disabling)
  Sender: FDA-Public Use
  Company Number: US-MERCK-0504USA04785

PATIENT
  Age: 52 Year
  Sex: Female
  Weight: 105 kg

DRUGS (4)
  1. VIOXX [Suspect]
     Indication: ARTHRITIS
     Route: 048
     Dates: start: 20010101, end: 20030201
  2. VIOXX [Suspect]
     Indication: SWELLING
     Route: 048
     Dates: start: 20010101, end: 20030201
  3. TYLENOL [Concomitant]
     Route: 065
  4. IBUPROFEN [Concomitant]
     Route: 065

REACTIONS (27)
  - ANXIETY [None]
  - AORTIC VALVE SCLEROSIS [None]
  - ARTHRITIS [None]
  - ASTHMA [None]
  - BREAST CYST [None]
  - BUNDLE BRANCH BLOCK LEFT [None]
  - CARDIAC FAILURE CONGESTIVE [None]
  - CHRONIC OBSTRUCTIVE PULMONARY DISEASE [None]
  - CORONARY ARTERY DISEASE [None]
  - CORONARY ARTERY OCCLUSION [None]
  - DEPRESSION [None]
  - DIABETES MELLITUS [None]
  - DYSPNOEA [None]
  - FLUID RETENTION [None]
  - HYPERTENSION [None]
  - HYPERTENSIVE HEART DISEASE [None]
  - JOINT INJURY [None]
  - KNEE OPERATION [None]
  - LIMB DISCOMFORT [None]
  - MENISCUS LESION [None]
  - MITRAL VALVE CALCIFICATION [None]
  - MITRAL VALVE INCOMPETENCE [None]
  - MITRAL VALVE SCLEROSIS [None]
  - MYOCARDIAL INFARCTION [None]
  - PAIN IN EXTREMITY [None]
  - VENTRICULAR HYPERTROPHY [None]
  - VENTRICULAR HYPOKINESIA [None]
